FAERS Safety Report 11104513 (Version 1)
Quarter: 2015Q2

REPORT INFORMATION
  Report Type: Spontaneous
  Country: US (occurrence: US)
  Receive Date: 20150511
  Receipt Date: 20150511
  Transmission Date: 20150821
  Serious: Yes (Other)
  Sender: FDA-Public Use
  Company Number: US-PFIZER INC-2015153493

PATIENT
  Age: 54 Year
  Sex: Female
  Weight: 86 kg

DRUGS (11)
  1. VITAMIN B12 [Concomitant]
     Active Substance: CYANOCOBALAMIN
     Dosage: UNK, MONTHLY
  2. NEURONTIN [Suspect]
     Active Substance: GABAPENTIN
     Indication: SYSTEMIC LUPUS ERYTHEMATOSUS
     Dosage: 500 MG, DAILY (100 MG TWICE AND 300 MG AT NIGHT TIME)
  3. NEURONTIN [Suspect]
     Active Substance: GABAPENTIN
     Dosage: UNK
  4. IMIPRAMINE [Concomitant]
     Active Substance: IMIPRAMINE
     Indication: DEPRESSION
     Dosage: 150 MG, DAILY (50 MG AM; 100 MG , BEDTIME)
     Route: 048
  5. VITAMIN D /00107901/ [Concomitant]
     Active Substance: ERGOCALCIFEROL
     Indication: VITAMIN D DECREASED
  6. KLONOPIN [Concomitant]
     Active Substance: CLONAZEPAM
     Indication: ANXIETY
     Dosage: 2 MG, 3X/DAY
     Route: 048
  7. KLONOPIN [Concomitant]
     Active Substance: CLONAZEPAM
     Indication: PANIC ATTACK
  8. PERCOCET [Concomitant]
     Active Substance: ACETAMINOPHEN\OXYCODONE HYDROCHLORIDE
     Indication: BRAIN NEOPLASM
     Dosage: 10/325MG, UP TO EVERY 3 HOURS
     Route: 048
  9. PLAQUENIL [Concomitant]
     Active Substance: HYDROXYCHLOROQUINE SULFATE
     Indication: SYSTEMIC LUPUS ERYTHEMATOSUS
     Dosage: 200 MG, 1X/DAY
     Route: 048
  10. VITAMIN D /00107901/ [Concomitant]
     Active Substance: ERGOCALCIFEROL
     Indication: SYSTEMIC LUPUS ERYTHEMATOSUS
     Route: 048
  11. IMIPRAMINE [Concomitant]
     Active Substance: IMIPRAMINE
     Dosage: UNK

REACTIONS (6)
  - Hypersomnia [Not Recovered/Not Resolved]
  - Product use issue [Unknown]
  - Urinary retention [Not Recovered/Not Resolved]
  - Sedation [Unknown]
  - Constipation [Not Recovered/Not Resolved]
  - Urinary incontinence [Unknown]
